FAERS Safety Report 11625875 (Version 1)
Quarter: 2015Q4

REPORT INFORMATION
  Report Type: Spontaneous
  Country: US (occurrence: US)
  Receive Date: 20151013
  Receipt Date: 20151013
  Transmission Date: 20160304
  Serious: No
  Sender: FDA-Public Use
  Company Number: US-009507513-1510USA000378

PATIENT
  Age: 28 Year
  Sex: Female
  Weight: 45.35 kg

DRUGS (1)
  1. NEXPLANON [Suspect]
     Active Substance: ETONOGESTREL
     Indication: CONTRACEPTION
     Dosage: EVERY THREE YEARS, LEFT ARM IMPLANT
     Route: 059
     Dates: start: 20140505

REACTIONS (8)
  - Implant site pain [Recovered/Resolved]
  - Headache [Unknown]
  - Mood swings [Unknown]
  - Abdominal pain upper [Unknown]
  - Dizziness [Unknown]
  - Menstruation irregular [Unknown]
  - Weight decreased [Unknown]
  - Pain in extremity [Unknown]

NARRATIVE: CASE EVENT DATE: 20140505
